FAERS Safety Report 19567726 (Version 2)
Quarter: 2021Q3

REPORT INFORMATION
  Report Type: Report from Study
  Country: CA (occurrence: CA)
  Receive Date: 20210715
  Receipt Date: 20210816
  Transmission Date: 20211014
  Serious: Yes (Other)
  Sender: FDA-Public Use
  Company Number: CA-JNJFOC-20210723514

PATIENT
  Age: 8 Year
  Sex: Female
  Weight: 23.4 kg

DRUGS (3)
  1. REMICADE [Suspect]
     Active Substance: INFLIXIMAB
     Route: 042
     Dates: start: 20210121
  2. REMICADE [Suspect]
     Active Substance: INFLIXIMAB
     Indication: COLITIS ULCERATIVE
     Route: 042
     Dates: start: 20201218
  3. REMICADE [Suspect]
     Active Substance: INFLIXIMAB
     Route: 042

REACTIONS (2)
  - Colitis ulcerative [Not Recovered/Not Resolved]
  - Drug level abnormal [Unknown]

NARRATIVE: CASE EVENT DATE: 20210703
